FAERS Safety Report 17879434 (Version 2)
Quarter: 2020Q3

REPORT INFORMATION
  Report Type: Spontaneous
  Country: PT (occurrence: PT)
  Receive Date: 20200610
  Receipt Date: 20200701
  Transmission Date: 20201103
  Serious: Yes (Disabling)
  Sender: FDA-Public Use
  Company Number: PT-SA-2020SA145907

PATIENT

DRUGS (4)
  1. FLUOROURACIL. [Suspect]
     Active Substance: FLUOROURACIL
     Indication: ADENOCARCINOMA OF COLON
     Dosage: 6190 MG, QCY (884MG BOLUS + 5306MG PERFUSION 24 HOURS)
     Route: 042
     Dates: start: 20200504, end: 20200505
  2. PANITUMUMAB [Suspect]
     Active Substance: PANITUMUMAB
     Indication: ADENOCARCINOMA OF COLON
     Dosage: 533 MG, QCY
     Route: 042
     Dates: start: 20200504, end: 20200504
  3. OXALIPLATIN. [Suspect]
     Active Substance: OXALIPLATIN
     Indication: ADENOCARCINOMA OF COLON
     Dosage: 188 MG, QCY
     Route: 042
     Dates: start: 20200504, end: 20200504
  4. FLUOROURACIL. [Suspect]
     Active Substance: FLUOROURACIL
     Dosage: 6190 MG, QCY (884MG BOLUS + 5306MG PERFUSION 24 HOURS)
     Route: 042
     Dates: start: 20200505, end: 20200505

REACTIONS (1)
  - Aphthous ulcer [Recovered/Resolved]

NARRATIVE: CASE EVENT DATE: 20200513
